FAERS Safety Report 12632143 (Version 2)
Quarter: 2016Q3

REPORT INFORMATION
  Report Type: Spontaneous
  Country: US (occurrence: US)
  Receive Date: 20160808
  Receipt Date: 20160808
  Transmission Date: 20161109
  Serious: No
  Sender: FDA-Public Use
  Company Number: US-BEH-2016061973

PATIENT
  Age: 60 Year
  Sex: Female
  Weight: 79 kg

DRUGS (15)
  1. CEFDINIR. [Concomitant]
     Active Substance: CEFDINIR
  2. AMBIEN [Concomitant]
     Active Substance: ZOLPIDEM TARTRATE
  3. KETOLAC [Concomitant]
  4. WELLBUTRIN [Concomitant]
     Active Substance: BUPROPION HYDROCHLORIDE
  5. ACETAMINOPHEN. [Concomitant]
     Active Substance: ACETAMINOPHEN
  6. DIPHENHYDRAMINE. [Concomitant]
     Active Substance: DIPHENHYDRAMINE
  7. DUTOPROL [Concomitant]
     Active Substance: HYDROCHLOROTHIAZIDE\METOPROLOL SUCCINATE
  8. EPIPEN [Concomitant]
     Active Substance: EPINEPHRINE
  9. NEURONTIN [Concomitant]
     Active Substance: GABAPENTIN
  10. LEVAQUIN [Concomitant]
     Active Substance: LEVOFLOXACIN
  11. PREDNISONE. [Concomitant]
     Active Substance: PREDNISONE
  12. HIZENTRA [Suspect]
     Active Substance: HUMAN IMMUNOGLOBULIN G
     Indication: SELECTIVE IGG SUBCLASS DEFICIENCY
     Route: 058
     Dates: start: 20140829
  13. NEXIUM [Concomitant]
     Active Substance: ESOMEPRAZOLE MAGNESIUM
  14. LIDOCAINE. [Concomitant]
     Active Substance: LIDOCAINE
  15. SPORANOX [Concomitant]
     Active Substance: ITRACONAZOLE

REACTIONS (1)
  - Sinusitis [Unknown]

NARRATIVE: CASE EVENT DATE: 201602
